FAERS Safety Report 8020245-1 (Version None)
Quarter: 2012Q1

REPORT INFORMATION
  Report Type: 
  Country: None (occurrence: None)
  Receive Date: 20120103
  Receipt Date: 20111219
  Transmission Date: 20120608
  Serious: Yes (Hospitalization)
  Sender: FDA-Public Use
  Company Number: US-ARROW GEN-2011-22293

PATIENT
  Age: 10 Year
  Sex: Male

DRUGS (5)
  1. LITHIUM CARBONATE [Suspect]
     Indication: MANIA
     Dosage: STARTED 3RD WEEK OF HOSPITAL ADMISSION
     Route: 065
  2. LITHIUM CARBONATE [Suspect]
     Dosage: GRADUAL INCREASE TO 600MG BID OVER 1 WEEK
     Route: 065
  3. LITHIUM CARBONATE [Suspect]
     Dosage: 5 DAYS AFTER STARTING 600MG BID
     Route: 065
  4. LITHIUM CARBONATE [Suspect]
     Dosage: 5 DAYS AFTER STARTING 900MG BID, DECREASED TO 600MG IN THE MORNING, 900MG AT NIGHT
     Route: 065
  5. RISPERIDONE [Suspect]
     Indication: BIPOLAR DISORDER
     Dosage: INCREASED TO 4MG AT BEDTIME 1 WEEK PRIOR TO STARTING LITHIUM
     Route: 048

REACTIONS (1)
  - DYSPHEMIA [None]
